FAERS Safety Report 9604178 (Version 1)
Quarter: 2013Q4

REPORT INFORMATION
  Report Type: Spontaneous
  Country: US (occurrence: US)
  Receive Date: 20131008
  Receipt Date: 20131008
  Transmission Date: 20140711
  Serious: Yes (Other)
  Sender: FDA-Public Use
  Company Number: US-BRISTOL-MYERS SQUIBB COMPANY-19449156

PATIENT
  Age: 34 Year
  Sex: Male

DRUGS (3)
  1. ABILIFY [Suspect]
  2. CYMBALTA [Suspect]
  3. RISPERDAL [Suspect]

REACTIONS (1)
  - Hallucination, auditory [Unknown]
